FAERS Safety Report 13710975 (Version 1)
Quarter: 2017Q3

REPORT INFORMATION
  Report Type: Report from Study
  Country: RU (occurrence: RU)
  Receive Date: 20170703
  Receipt Date: 20170703
  Transmission Date: 20171127
  Serious: Yes (Other)
  Sender: FDA-Public Use
  Company Number: RU-TEVA-783458ISR

PATIENT
  Age: 2 Year
  Sex: Male
  Weight: 12.8 kg

DRUGS (6)
  1. VINCRISTIN [Suspect]
     Active Substance: VINCRISTINE
     Indication: RHABDOMYOSARCOMA
     Dosage: .85 MILLIGRAM DAILY; LAST DOSE PRIOR TO SAE: 14-JUN-2017
     Route: 042
     Dates: start: 20170614
  2. NEUPOGEN [Suspect]
     Active Substance: FILGRASTIM
     Indication: COLONY STIMULATING FACTOR PROPHYLAXIS
     Dosage: 66 MILLIGRAM DAILY; 1/DAY, 1/CYCLE LAST DOSE PRIOR TO SAE: 30-MAY-2017
     Route: 058
     Dates: start: 20170331
  3. IFOSFAMIDE. [Suspect]
     Active Substance: IFOSFAMIDE
     Indication: RHABDOMYOSARCOMA
     Dosage: 1740 MILLIGRAM DAILY; LAST DOSE PRIOR TO SAE: 15-JUN-2017
     Route: 042
     Dates: start: 20170614
  4. LONQUEX [Suspect]
     Active Substance: LIPEGFILGRASTIM
     Dosage: 0 MILLIGRAM DAILY;
  5. DOXORUBICIN TEVA [Suspect]
     Active Substance: DOXORUBICIN
     Indication: RHABDOMYOSARCOMA
     Dosage: 17.5 MILLIGRAM DAILY; LAST DOSE PRIOR TO SAE: 15-JUN-2017
     Route: 042
     Dates: start: 20170614
  6. ACTINOMYCIN D [Suspect]
     Active Substance: DACTINOMYCIN
     Indication: RHABDOMYOSARCOMA
     Dosage: .85 MILLIGRAM DAILY; LAST DOSE PRIOR TO SAE: 14-JUN-2017
     Route: 042
     Dates: start: 20170614

REACTIONS (1)
  - Lymphocyte count decreased [Recovered/Resolved with Sequelae]

NARRATIVE: CASE EVENT DATE: 20170615
